FAERS Safety Report 6006986-6 (Version None)
Quarter: 2008Q4

REPORT INFORMATION
  Report Type: 
  Country: None (occurrence: None)
  Receive Date: 20081217
  Receipt Date: 20080222
  Transmission Date: 20090506
  Serious: No
  Sender: FDA-Public Use
  Company Number: US-ASTRAZENECA-2007UW28194

PATIENT
  Age: 69 Year
  Sex: Female
  Weight: 71.4 kg

DRUGS (8)
  1. CRESTOR [Suspect]
     Indication: BLOOD CHOLESTEROL INCREASED
     Route: 048
     Dates: start: 20071128, end: 20071217
  2. FUROSEMIDE [Concomitant]
  3. SPIRONOLACTONE [Concomitant]
  4. NAPROXEN [Concomitant]
  5. LYRICA [Concomitant]
  6. PROTONIX [Concomitant]
  7. METOPROLOL TARTRATE [Concomitant]
  8. ASPIRIN [Concomitant]

REACTIONS (2)
  - LIP ULCERATION [None]
  - MOUTH ULCERATION [None]
